FAERS Safety Report 4921068-X (Version None)
Quarter: 2006Q1

REPORT INFORMATION
  Report Type: 
  Country: None (occurrence: None)
  Receive Date: 20060223
  Receipt Date: 20060127
  Transmission Date: 20060701
  Serious: Yes (Hospitalization, Other)
  Sender: FDA-Public Use
  Company Number: US-MERCK-0601USA03391

PATIENT
  Age: 49 Year
  Sex: Female

DRUGS (3)
  1. ZETIA [Suspect]
     Indication: HYPERLIPIDAEMIA
     Route: 048
     Dates: start: 20040101, end: 20050101
  2. ZETIA [Suspect]
     Route: 048
     Dates: end: 20060101
  3. SYNTHROID [Concomitant]
     Route: 065

REACTIONS (1)
  - BLOOD THYROID STIMULATING HORMONE INCREASED [None]
